FAERS Safety Report 18265466 (Version 1)
Quarter: 2020Q3

REPORT INFORMATION
  Report Type: Other
  Country: US (occurrence: US)
  Receive Date: 20200914
  Receipt Date: 20200914
  Transmission Date: 20201103
  Serious: No
  Sender: FDA-Public Use
  Company Number: US-LEADIANT BIOSCIENCES INC-2020STPI000209

PATIENT
  Age: 33 Year
  Sex: Female

DRUGS (10)
  1. VIMPAT [Concomitant]
     Active Substance: LACOSAMIDE
  2. MATULANE [Suspect]
     Active Substance: PROCARBAZINE HYDROCHLORIDE
     Indication: BRAIN NEOPLASM MALIGNANT
     Dosage: UNK
  3. VALACYCLOVIR [Concomitant]
     Active Substance: VALACYCLOVIR HYDROCHLORIDE
  4. FAMOTIDINE. [Concomitant]
     Active Substance: FAMOTIDINE
  5. DEXTROAMPHETAMINE [DEXAMFETAMINE SULFATE] [Concomitant]
     Active Substance: DEXTROAMPHETAMINE SULFATE
  6. TROKENDI [Concomitant]
     Active Substance: TOPIRAMATE
  7. VITAMIN D [COLECALCIFEROL] [Concomitant]
     Active Substance: CHOLECALCIFEROL
  8. BRIVIACT [Concomitant]
     Active Substance: BRIVARACETAM
  9. LORAZEPAM. [Concomitant]
     Active Substance: LORAZEPAM
  10. ONDANSETRON [Concomitant]
     Active Substance: ONDANSETRON

REACTIONS (2)
  - Platelet count decreased [Not Recovered/Not Resolved]
  - Nausea [Not Recovered/Not Resolved]

NARRATIVE: CASE EVENT DATE: 20200101
